FAERS Safety Report 14346148 (Version 1)
Quarter: 2018Q1

REPORT INFORMATION
  Report Type: Spontaneous
  Country: US (occurrence: US)
  Receive Date: 20180103
  Receipt Date: 20180103
  Transmission Date: 20180509
  Serious: Yes (Other)
  Sender: FDA-Public Use
  Company Number: US-JAZZ-JPI-P-032276

PATIENT
  Age: 67 Year
  Sex: Female

DRUGS (2)
  1. XYREM [Suspect]
     Active Substance: SODIUM OXYBATE
     Indication: MYOSITIS
  2. XYREM [Suspect]
     Active Substance: SODIUM OXYBATE
     Indication: MYALGIA
     Dosage: 3 G, BID
     Route: 048
     Dates: start: 20050422

REACTIONS (1)
  - Meniscus operation [Unknown]

NARRATIVE: CASE EVENT DATE: 201305
